FAERS Safety Report 9398366 (Version 1)
Quarter: 2013Q3

REPORT INFORMATION
  Report Type: Spontaneous
  Country: US (occurrence: US)
  Receive Date: 20130712
  Receipt Date: 20130712
  Transmission Date: 20140515
  Serious: No
  Sender: FDA-Public Use
  Company Number: US-GLAXOSMITHKLINE-A1009346A

PATIENT
  Age: 52 Year
  Sex: Female

DRUGS (3)
  1. FLOVENT [Suspect]
     Indication: ASTHMA
     Dosage: 2PUFF TWICE PER DAY
     Route: 055
     Dates: start: 20120927, end: 201210
  2. ALBUTEROL [Concomitant]
     Route: 055
  3. VENTOLIN HFA [Concomitant]
     Route: 055

REACTIONS (3)
  - Drug ineffective [Unknown]
  - Lung disorder [Unknown]
  - Wheezing [Unknown]
